FAERS Safety Report 8811587 (Version 13)
Quarter: 2013Q1

REPORT INFORMATION
  Report Type: Spontaneous
  Country: CA (occurrence: CA)
  Receive Date: 20120927
  Receipt Date: 20130327
  Transmission Date: 20140127
  Serious: Yes (Other)
  Sender: FDA-Public Use
  Company Number: PHHY2012CA082985

PATIENT
  Age: 39 Year
  Sex: Male

DRUGS (8)
  1. GILENYA [Suspect]
     Indication: RELAPSING-REMITTING MULTIPLE SCLEROSIS
     Dosage: 0.5 MG, QD
     Route: 048
     Dates: start: 20120821, end: 20130219
  2. GILENYA [Suspect]
     Dosage: 0.5 MG, QD
     Route: 048
     Dates: start: 20130325
  3. PREDNISOL [Concomitant]
     Dosage: UNK UKN, UNK, LOCAL APPLICATION RT EYE EVERY 2H FOR 7 DAYS THEN EVERY 3H FOR 7 DAYS
  4. MAXIDEX [Concomitant]
     Dosage: UNK UKN, QD, LOCAL APPLICATION RT EYE 1X/DAY AT BEDTIME
  5. PERIDEX [Concomitant]
     Dosage: UNK UKN, UNK, GARGLE WITH 15ML 3-4X/DAY FOR 1 MONTH
     Route: 048
  6. BETASERON [Concomitant]
  7. MINOCYCLIN [Concomitant]
     Dosage: 100 MG, TAKE 1 CAP 2X/DAY EVERY 12H AT BREAKFAST AND DINNER FOR 1 MONTH
  8. PENICILLIN [Concomitant]
     Dosage: UNK UKN, UNK

REACTIONS (7)
  - Iridocyclitis [Recovered/Resolved]
  - Ocular hyperaemia [Recovering/Resolving]
  - Vision blurred [Recovering/Resolving]
  - Visual impairment [Recovering/Resolving]
  - Eye pain [Recovered/Resolved]
  - Photophobia [Recovering/Resolving]
  - Vitreous floaters [Recovering/Resolving]
